FAERS Safety Report 20705193 (Version 2)
Quarter: 2022Q2

REPORT INFORMATION
  Report Type: Spontaneous
  Country: US (occurrence: US)
  Receive Date: 20220413
  Receipt Date: 20220527
  Transmission Date: 20220721
  Serious: No
  Sender: FDA-Public Use
  Company Number: US-GILEAD-2022-0577582

PATIENT
  Sex: Male

DRUGS (2)
  1. VEMLIDY [Suspect]
     Active Substance: TENOFOVIR ALAFENAMIDE FUMARATE
     Indication: Chronic hepatitis B
     Dosage: 1 DOSAGE FORM, QD
     Route: 048
  2. PROTEIN [Concomitant]
     Active Substance: PROTEIN

REACTIONS (1)
  - No adverse event [Unknown]
